FAERS Safety Report 9724675 (Version 5)
Quarter: 2014Q1

REPORT INFORMATION
  Report Type: Spontaneous
  Country: US (occurrence: US)
  Receive Date: 20131202
  Receipt Date: 20140204
  Transmission Date: 20141002
  Serious: Yes (Hospitalization, Other)
  Sender: FDA-Public Use
  Company Number: US-BAXTER-2013BAX047414

PATIENT
  Age: 64 Year
  Sex: Female

DRUGS (5)
  1. DIANEAL LOW CALCIUM [Suspect]
     Indication: PERITONEAL DIALYSIS
     Route: 033
  2. DIANEAL LOW CALCIUM [Suspect]
     Route: 033
     Dates: start: 20140109
  3. DIANEAL LOW CALCIUM [Suspect]
     Indication: PERITONEAL DIALYSIS
     Route: 033
     Dates: start: 201303
  4. DIANEAL LOW CALCIUM [Suspect]
     Dosage: LAST FILL
     Route: 033
     Dates: start: 201303
  5. DIANEAL LOW CALCIUM [Suspect]
     Route: 033
     Dates: start: 20140109

REACTIONS (14)
  - Fall [Recovering/Resolving]
  - Pneumoperitoneum [Unknown]
  - Fractured coccyx [Unknown]
  - Contusion [Unknown]
  - Periorbital contusion [Unknown]
  - Cerebrovascular accident [Recovering/Resolving]
  - Orthostatic hypertension [Recovering/Resolving]
  - Hip fracture [Recovering/Resolving]
  - Syncope [Recovering/Resolving]
  - Orthostatic hypotension [Recovering/Resolving]
  - Pain [Unknown]
  - Peritoneal dialysis complication [Unknown]
  - Peritoneal dialysis complication [Recovered/Resolved]
  - Peritoneal dialysis complication [Recovered/Resolved]
